FAERS Safety Report 4591463-X (Version None)
Quarter: 2005Q1

REPORT INFORMATION
  Report Type: 
  Country: None (occurrence: None)
  Receive Date: 20050223
  Receipt Date: 20050223
  Transmission Date: 20050727
  Serious: Yes (Hospitalization)
  Sender: FDA-Public Use
  Company Number: None

PATIENT
  Sex: Female

DRUGS (23)
  1. FENTANYL [Suspect]
     Indication: PAIN
     Dosage: 150 MCG/HR  EVERY 2 DAYS  TOPICAL
     Route: 061
     Dates: start: 20040924, end: 20040924
  2. FENTANYL [Suspect]
     Indication: PAIN
     Dosage: 150 MCG/HR  EVERY 2 DAYS  TOPICAL
     Route: 061
     Dates: start: 20040924, end: 20040924
  3. AMITRIPTYLINE [Concomitant]
  4. BUPROPION HCL [Concomitant]
  5. CALCITONIN [Concomitant]
  6. HYDROXYZINE HCL [Concomitant]
  7. LACTULOSE [Concomitant]
  8. LISINOPRIL [Concomitant]
  9. LORAZEPAM [Concomitant]
  10. METOPROLOL [Concomitant]
  11. NEPHROCAPS [Concomitant]
  12. OMEPRAZOLE [Concomitant]
  13. ONDANSETRON [Concomitant]
  14. OXYCODONE AND ACETAMINOPHEN [Concomitant]
  15. PREDNISONE [Concomitant]
  16. SENNA [Concomitant]
  17. SEVELAMER [Concomitant]
  18. SIMVASTATIN [Concomitant]
  19. SODIUM BICARBONATE [Concomitant]
  20. URSODIOL [Concomitant]
  21. VIOKASE [Concomitant]
  22. WARFARIN SODIUM [Concomitant]
  23. ZOLPIDEM TARTRATE [Concomitant]

REACTIONS (2)
  - DIALYSIS [None]
  - MENTAL STATUS CHANGES [None]
